FAERS Safety Report 9336834 (Version 1)
Quarter: 2013Q2

REPORT INFORMATION
  Report Type: Spontaneous
  Country: FR (occurrence: FR)
  Receive Date: 20130607
  Receipt Date: 20130607
  Transmission Date: 20140414
  Serious: Yes (Hospitalization)
  Sender: FDA-Public Use
  Company Number: FR-PFIZER INC-2013169196

PATIENT
  Age: 61 Year
  Sex: Male

DRUGS (2)
  1. XANAX [Suspect]
     Dosage: 0.5 MG, SINGLE INTAKE OF 4 BOXES
     Route: 048
     Dates: start: 20120525, end: 20120525
  2. BACLOFEN [Suspect]
     Route: 048

REACTIONS (6)
  - Suicide attempt [Recovered/Resolved]
  - Alcohol abuse [Recovered/Resolved]
  - Confusional state [Recovered/Resolved]
  - Disorientation [Recovered/Resolved]
  - Fall [Recovered/Resolved]
  - Chills [Recovered/Resolved]
